FAERS Safety Report 25711733 (Version 2)
Quarter: 2025Q3

REPORT INFORMATION
  Report Type: Spontaneous
  Country: US (occurrence: US)
  Receive Date: 20250821
  Receipt Date: 20250909
  Transmission Date: 20251021
  Serious: Yes (Hospitalization)
  Sender: MERCK SHARP & DOHME LLC
  Company Number: US-009507513-2319472

PATIENT
  Age: 0 Year
  Sex: Female
  Weight: 69.4 kg

DRUGS (18)
  1. KEYTRUDA [Suspect]
     Active Substance: PEMBROLIZUMAB
     Indication: Non-small cell lung cancer
     Route: 065
     Dates: start: 20250519, end: 20250622
  2. KEYTRUDA [Suspect]
     Active Substance: PEMBROLIZUMAB
     Indication: Non-small cell lung cancer
     Route: 065
     Dates: start: 20250722
  3. PEMETREXED [Concomitant]
     Active Substance: PEMETREXED
     Dates: start: 20250519
  4. CARBOPLATIN [Concomitant]
     Active Substance: CARBOPLATIN
     Dates: start: 20250519
  5. VALIUM [Concomitant]
     Active Substance: DIAZEPAM
     Dates: start: 20250513
  6. DILAUDID [Concomitant]
     Active Substance: HYDROMORPHONE HYDROCHLORIDE
     Dates: start: 20250506
  7. TYLENOL [Concomitant]
     Active Substance: ACETAMINOPHEN
     Dates: start: 20250506
  8. ZOFRAN [Concomitant]
     Active Substance: ONDANSETRON HYDROCHLORIDE
     Dates: start: 20250428
  9. GLYCOLAX [Concomitant]
     Active Substance: POLYETHYLENE GLYCOL 3350
     Dates: start: 20250415
  10. COLACE [Concomitant]
     Active Substance: DOCUSATE SODIUM
     Dates: start: 20250423
  11. SIMETHICONE (DIMETHICONE) [Concomitant]
     Active Substance: DIMETHICONE
     Dates: start: 20150101
  12. LORATADINE [Concomitant]
     Active Substance: LORATADINE
     Dates: start: 20200101
  13. LIDOCAINE [Concomitant]
     Active Substance: LIDOCAINE
     Dates: start: 20250331
  14. folvit [Concomitant]
     Dates: start: 20250515
  15. probiotic acidophilus (lactobacillus acidophi) [Concomitant]
     Dates: start: 20200101
  16. CYANOCOBALAMIN [Concomitant]
     Active Substance: CYANOCOBALAMIN
     Dates: start: 20250519
  17. ALBUTEROL [Concomitant]
     Active Substance: ALBUTEROL
     Dates: start: 20250519
  18. HYDROMORPHONE HCL [Concomitant]
     Active Substance: HYDROMORPHONE HYDROCHLORIDE
     Dates: start: 20250619

REACTIONS (3)
  - Febrile neutropenia [Recovering/Resolving]
  - Immune-mediated enterocolitis [Recovered/Resolved]
  - Immune-mediated enterocolitis [Recovering/Resolving]

NARRATIVE: CASE EVENT DATE: 20250623
